FAERS Safety Report 4972397-5 (Version None)
Quarter: 2006Q1

REPORT INFORMATION
  Report Type: 
  Country: None (occurrence: None)
  Receive Date: 20060216
  Receipt Date: 20051101
  Transmission Date: 20060701
  Serious: No
  Sender: FDA-Public Use
  Company Number: TPA2005A01394

PATIENT
  Age: 44 Year
  Sex: Female
  Weight: 74.8435 kg

DRUGS (8)
  1. ROZEREM [Suspect]
     Indication: INITIAL INSOMNIA
     Dosage: 8 MG, QHS, PER ORAL
     Route: 048
     Dates: start: 20051031
  2. AMBIEN (ZOLPIDEM TARTRATE) (10 MILLIGRAM) [Suspect]
     Indication: SLEEP DISORDER
     Dosage: 10 MG, 1 IN 1 D, PER ORAL
     Route: 048
     Dates: start: 20050901, end: 20051028
  3. TOPROL-XL [Concomitant]
  4. ZYRTEC-D (CIRRUS) [Concomitant]
  5. ZOLOFT [Concomitant]
  6. HYDROCHLOROTHIAZIDE [Concomitant]
  7. COLACE (DOCUSATE SODIUM) [Concomitant]
  8. ADVIL [Concomitant]

REACTIONS (4)
  - DIZZINESS [None]
  - FATIGUE [None]
  - INITIAL INSOMNIA [None]
  - SOMNOLENCE [None]
